FAERS Safety Report 5631591-0 (Version None)
Quarter: 2008Q1

REPORT INFORMATION
  Report Type: 
  Country: None (occurrence: None)
  Receive Date: 20080215
  Receipt Date: 20080201
  Transmission Date: 20080703
  Serious: Yes (Hospitalization)
  Sender: FDA-Public Use
  Company Number: 2008PL000014

PATIENT
  Age: 18 Year
  Sex: Female

DRUGS (3)
  1. IMURAN [Suspect]
     Indication: IMMUNOSUPPRESSANT DRUG THERAPY
     Dosage: PO
     Route: 048
     Dates: start: 20050201
  2. METHYLPREDNISOLONE [Concomitant]
  3. TACROLIMUS [Concomitant]

REACTIONS (5)
  - ABSCESS BACTERIAL [None]
  - BILIARY ANASTOMOSIS COMPLICATION [None]
  - HEPATIC ARTERY STENOSIS [None]
  - IMMUNOSUPPRESSANT DRUG LEVEL INCREASED [None]
  - LIVER ABSCESS [None]
